FAERS Safety Report 21171075 (Version 2)
Quarter: 2022Q3

REPORT INFORMATION
  Report Type: Report from Study
  Country: GT (occurrence: GT)
  Receive Date: 20220804
  Receipt Date: 20220825
  Transmission Date: 20221027
  Serious: Yes (Hospitalization)
  Sender: FDA-Public Use
  Company Number: GT-BAYER-2022A098820

PATIENT
  Age: 33 Year
  Sex: Female

DRUGS (5)
  1. BETAFERON [Suspect]
     Active Substance: INTERFERON BETA-1B
     Indication: Multiple sclerosis
     Dosage: 1 ML, QOD
     Dates: start: 20210730
  2. BETAFERON [Suspect]
     Active Substance: INTERFERON BETA-1B
     Indication: Multiple sclerosis
  3. KETOPROFEN [Concomitant]
     Active Substance: KETOPROFEN
     Indication: Pain
     Dosage: UNK
  4. VITAMIN D NOS [Concomitant]
     Active Substance: VITAMIN D NOS
     Indication: Nutritional supplementation
     Dosage: UNK
  5. VITAMIN C [Concomitant]
     Active Substance: ASCORBIC ACID
     Indication: Nutritional supplementation
     Dosage: UNK

REACTIONS (3)
  - Tachycardia [Recovered/Resolved]
  - Headache [Recovered/Resolved]
  - Arrhythmia [Recovered/Resolved]

NARRATIVE: CASE EVENT DATE: 20220630
